FAERS Safety Report 25304208 (Version 1)
Quarter: 2025Q2

REPORT INFORMATION
  Report Type: Spontaneous
  Country: US (occurrence: US)
  Receive Date: 20250513
  Receipt Date: 20250513
  Transmission Date: 20250716
  Serious: Yes (Other)
  Sender: COOPERSURGICAL
  Company Number: US-COOPERSURGICAL, INC.-2025CPS003647

PATIENT
  Age: 39 Year
  Sex: Female
  Weight: 87.982 kg

DRUGS (5)
  1. PARAGARD T 380A [Suspect]
     Active Substance: COPPER
     Indication: Contraception
     Route: 015
     Dates: start: 20170817, end: 20210827
  2. LOSARTAN [Concomitant]
     Active Substance: LOSARTAN
     Dates: start: 201707
  3. METOPROLOL [Concomitant]
     Active Substance: METOPROLOL
     Dates: start: 201707
  4. ADDERALL [Concomitant]
     Active Substance: AMPHETAMINE ASPARTATE\AMPHETAMINE SULFATE\DEXTROAMPHETAMINE SACCHARATE\DEXTROAMPHETAMINE SULFATE
     Dates: start: 201708
  5. GUANFACINE [Concomitant]
     Active Substance: GUANFACINE
     Dates: start: 201708

REACTIONS (20)
  - Hysterectomy [Not Recovered/Not Resolved]
  - Salpingectomy [Recovered/Resolved]
  - Reproductive complication associated with device [Not Recovered/Not Resolved]
  - Device breakage [Recovered/Resolved]
  - Foreign body in reproductive tract [Recovered/Resolved]
  - Complication of device removal [Recovered/Resolved]
  - Embedded device [Recovered/Resolved]
  - Uterine perforation [Recovered/Resolved]
  - Procedural pain [Recovered/Resolved]
  - Emotional distress [Not Recovered/Not Resolved]
  - Sexual dysfunction [Not Recovered/Not Resolved]
  - Libido decreased [Unknown]
  - Hormone level abnormal [Not Recovered/Not Resolved]
  - Body temperature fluctuation [Unknown]
  - Weight increased [Unknown]
  - Anxiety [Unknown]
  - Depression [Unknown]
  - Abdominal pain [Recovered/Resolved]
  - Pain [Recovered/Resolved]
  - Pelvic pain [Unknown]

NARRATIVE: CASE EVENT DATE: 20210625
